FAERS Safety Report 18068678 (Version 2)
Quarter: 2020Q4

REPORT INFORMATION
  Report Type: Spontaneous
  Country: US (occurrence: US)
  Receive Date: 20200724
  Receipt Date: 20201002
  Transmission Date: 20210113
  Serious: No
  Sender: FDA-Public Use
  Company Number: US-BAUSCH-BL-2020-020250

PATIENT
  Age: 50 Year
  Sex: Female
  Weight: 75.36 kg

DRUGS (1)
  1. PLENVU [Suspect]
     Active Substance: ASCORBIC ACID\POLYETHYLENE GLYCOL 3350\POTASSIUM CHLORIDE\SODIUM ASCORBATE\SODIUM CHLORIDE\SODIUM SULFATE
     Indication: BOWEL PREPARATION
     Route: 048
     Dates: start: 20200712, end: 20200713

REACTIONS (3)
  - Vomiting [Unknown]
  - Therapeutic product effect incomplete [Unknown]
  - Chills [Unknown]

NARRATIVE: CASE EVENT DATE: 202007
